FAERS Safety Report 6843330-6 (Version None)
Quarter: 2010Q3

REPORT INFORMATION
  Report Type: 
  Country: None (occurrence: None)
  Receive Date: 20100715
  Receipt Date: 20100702
  Transmission Date: 20110219
  Serious: Yes (Other)
  Sender: FDA-Public Use
  Company Number: US-SHIRE-SPV1-2010-01001

PATIENT

DRUGS (5)
  1. INTUNIV [Suspect]
     Indication: ATTENTION DEFICIT/HYPERACTIVITY DISORDER
     Dosage: 1 MG, 1X/DAY:QD
     Route: 048
     Dates: start: 20100515, end: 20100517
  2. ADDERALL 10 [Concomitant]
     Indication: ATTENTION DEFICIT/HYPERACTIVITY DISORDER
     Dosage: 60 MG, UNKNOWN
     Route: 048
  3. DEXTROAMPHETAMINE                  /00016601/ [Concomitant]
     Indication: ATTENTION DEFICIT/HYPERACTIVITY DISORDER
     Dosage: 10 MG, UNKNOWN
     Route: 048
  4. HYDROCODONE [Concomitant]
     Indication: PAIN
     Dosage: 10 MG, UNKNOWN
  5. VALIUM [Concomitant]
     Indication: INSOMNIA
     Dosage: 10 MG, 2X/DAY:BID
     Route: 048

REACTIONS (13)
  - CONTUSION [None]
  - DIZZINESS [None]
  - FATIGUE [None]
  - HEART RATE DECREASED [None]
  - HYPOAESTHESIA [None]
  - HYPOTENSION [None]
  - INSOMNIA [None]
  - LETHARGY [None]
  - MYDRIASIS [None]
  - OFF LABEL USE [None]
  - PAIN IN JAW [None]
  - SYNCOPE [None]
  - VERTIGO [None]
